FAERS Safety Report 23518663 (Version 1)
Quarter: 2024Q1

REPORT INFORMATION
  Report Type: Spontaneous
  Country: CN (occurrence: CN)
  Receive Date: 20240213
  Receipt Date: 20240213
  Transmission Date: 20240410
  Serious: Yes (Other)
  Sender: FDA-Public Use
  Company Number: CN-PFIZER INC-PV202400019314

PATIENT
  Age: 18 Day
  Sex: Male
  Weight: 0.52 kg

DRUGS (1)
  1. LINEZOLID [Suspect]
     Active Substance: LINEZOLID
     Indication: Anti-infective therapy
     Dosage: 8 MG Q8H
     Route: 041
     Dates: start: 20240126, end: 20240202

REACTIONS (6)
  - Hypoglycaemia neonatal [Recovering/Resolving]
  - Granulocytopenia neonatal [Recovering/Resolving]
  - Thrombocytopenia neonatal [Recovering/Resolving]
  - Leukopenia neonatal [Recovering/Resolving]
  - Neutropenia neonatal [Recovering/Resolving]
  - Prescribed overdose [Unknown]

NARRATIVE: CASE EVENT DATE: 20240126
